FAERS Safety Report 13755805 (Version 1)
Quarter: 2017Q3

REPORT INFORMATION
  Report Type: Spontaneous
  Country: PA (occurrence: PA)
  Receive Date: 20170714
  Receipt Date: 20170714
  Transmission Date: 20171127
  Serious: Yes (Other)
  Sender: FDA-Public Use
  Company Number: PA-AMGEN-PANSP2017094288

PATIENT
  Sex: Female

DRUGS (1)
  1. ENBREL [Suspect]
     Active Substance: ETANERCEPT
     Indication: PRODUCT USED FOR UNKNOWN INDICATION
     Dosage: UNK
     Route: 065

REACTIONS (16)
  - Arthralgia [Not Recovered/Not Resolved]
  - Injection site erythema [Recovered/Resolved]
  - Condition aggravated [Unknown]
  - Fatigue [Unknown]
  - Abdominal discomfort [Unknown]
  - Injection site rash [Recovered/Resolved]
  - Sjogren^s syndrome [Unknown]
  - Wrong technique in product usage process [Recovered/Resolved]
  - Neck pain [Unknown]
  - Abdominal pain upper [Unknown]
  - Injection site discolouration [Recovered/Resolved]
  - Nausea [Unknown]
  - Depression [Not Recovered/Not Resolved]
  - Palpitations [Unknown]
  - Injection site haematoma [Recovered/Resolved]
  - Chest pain [Unknown]
